FAERS Safety Report 7153714-7 (Version None)
Quarter: 2010Q4

REPORT INFORMATION
  Report Type: 
  Country: None (occurrence: None)
  Receive Date: 20101213
  Receipt Date: 20101203
  Transmission Date: 20110411
  Serious: Yes (Hospitalization)
  Sender: FDA-Public Use
  Company Number: US-MERCK-98081059

PATIENT
  Age: 72 Year
  Sex: Female

DRUGS (4)
  1. FOSAMAX [Suspect]
     Route: 048
     Dates: start: 19960101, end: 19970101
  2. ESTROGENIC PREPARATIONS (COMPOSITION UNSPECIFIED) [Concomitant]
     Route: 065
  3. BONIVA [Suspect]
     Route: 065
  4. ACTONEL [Suspect]
     Route: 065

REACTIONS (3)
  - ABDOMINAL PAIN UPPER [None]
  - ADVERSE EVENT [None]
  - OESOPHAGEAL DISORDER [None]
